FAERS Safety Report 4360222-5 (Version None)
Quarter: 2004Q2

REPORT INFORMATION
  Report Type: 
  Country: None (occurrence: None)
  Receive Date: 20040513
  Receipt Date: 20040504
  Transmission Date: 20050107
  Serious: Yes (Hospitalization, Other)
  Sender: FDA-Public Use
  Company Number: 2004018234

PATIENT
  Age: 79 Year
  Sex: Male
  Weight: 72.5755 kg

DRUGS (9)
  1. LIPITOR [Suspect]
     Indication: BLOOD CHOLESTEROL INCREASED
     Dosage: 10 MG (1 IN 1 D), ORAL
     Route: 048
  2. NORVASC [Suspect]
     Indication: HYPERTENSION
     Dosage: 10 MG (1 IN 1 D), ORAL
     Route: 048
     Dates: start: 20000101
  3. ENALAPRIL MALEATE [Suspect]
     Indication: ILL-DEFINED DISORDER
     Dosage: 40 MG (20 MG, 2 IN 1 D)
  4. ATENOLOL [Concomitant]
  5. LATANOPROST [Concomitant]
  6. TIMOLOL MALEATE [Concomitant]
  7. MEPINDOLOL SULFATE (MEPINDOLOL SULFATE) [Concomitant]
  8. WARFARIN SODIUM [Concomitant]
  9. VITAMINS (VITAMINS) [Concomitant]

REACTIONS (13)
  - ABDOMINAL PAIN UPPER [None]
  - ANAEMIA [None]
  - ASTHENIA [None]
  - BLOOD CHOLESTEROL INCREASED [None]
  - DIZZINESS [None]
  - DRY MOUTH [None]
  - DYSPHAGIA [None]
  - HYPERSOMNIA [None]
  - MARKEDLY REDUCED DIETARY INTAKE [None]
  - MUSCLE CRAMP [None]
  - MYALGIA [None]
  - OESOPHAGEAL CARCINOMA [None]
  - PANCREATITIS [None]
